FAERS Safety Report 8257918-1 (Version None)
Quarter: 2012Q2

REPORT INFORMATION
  Report Type: 
  Country: None (occurrence: None)
  Receive Date: 20120404
  Receipt Date: 20120402
  Transmission Date: 20120825
  Serious: No
  Sender: FDA-Public Use
  Company Number: US-PFIZER INC-2012083570

PATIENT
  Sex: Female

DRUGS (3)
  1. CHANTIX [Suspect]
     Indication: SMOKING CESSATION THERAPY
     Dosage: 0.5 MG, 1X/DAY
     Route: 048
     Dates: start: 20120326, end: 20120301
  2. CHANTIX [Suspect]
     Dosage: 0.5 MG, 2X/DAY
     Route: 048
     Dates: start: 20120301
  3. LEVOTHYROXINE [Concomitant]
     Indication: HYPOTHYROIDISM
     Dosage: 100 MG, 1X/DAY

REACTIONS (3)
  - SOMNOLENCE [None]
  - FATIGUE [None]
  - WEIGHT INCREASED [None]
